FAERS Safety Report 16244964 (Version 1)
Quarter: 2019Q2

REPORT INFORMATION
  Report Type: Spontaneous
  Country: ES (occurrence: ES)
  Receive Date: 20190426
  Receipt Date: 20190426
  Transmission Date: 20190711
  Serious: Yes (Other)
  Sender: FDA-Public Use
  Company Number: ES-TEVA-2019-ES-1041472

PATIENT
  Age: 63 Year
  Sex: Male

DRUGS (3)
  1. BRILIQUE 90 MG COMPRIMIDOS RECUBIERTOS CON PELICULA, 56 COMPRIMIDOS [Concomitant]
     Indication: ACUTE MYOCARDIAL INFARCTION
     Dosage: 180 MILLIGRAM DAILY;
     Route: 048
     Dates: start: 20190321, end: 20190321
  2. BISOPROLOL (2328A) [Suspect]
     Active Substance: BISOPROLOL
     Indication: ACUTE MYOCARDIAL INFARCTION
     Dosage: 2.5 MILLIGRAM DAILY;
     Route: 048
     Dates: start: 20190322, end: 20190322
  3. BRILIQUE 90 MG COMPRIMIDOS RECUBIERTOS CON PELICULA, 56 COMPRIMIDOS [Interacting]
     Active Substance: TICAGRELOR
     Indication: ACUTE MYOCARDIAL INFARCTION
     Dosage: 90 MILLIGRAM DAILY;
     Route: 048
     Dates: start: 20190322, end: 20190322

REACTIONS (2)
  - Drug interaction [Unknown]
  - Atrioventricular block [Recovered/Resolved]

NARRATIVE: CASE EVENT DATE: 20190322
